FAERS Safety Report 7488089-7 (Version None)
Quarter: 2011Q2

REPORT INFORMATION
  Report Type: 
  Country: None (occurrence: None)
  Receive Date: 20110518
  Receipt Date: 20110513
  Transmission Date: 20111010
  Serious: Yes (Hospitalization)
  Sender: FDA-Public Use
  Company Number: IT-PFIZER INC-2011104133

PATIENT
  Sex: Male

DRUGS (1)
  1. DOXORUBICIN HCL [Suspect]

REACTIONS (3)
  - COUGH [None]
  - PYREXIA [None]
  - DECREASED APPETITE [None]
